FAERS Safety Report 21991196 (Version 2)
Quarter: 2023Q1

REPORT INFORMATION
  Report Type: Spontaneous
  Country: US (occurrence: US)
  Receive Date: 20230214
  Receipt Date: 20230214
  Transmission Date: 20230418
  Serious: No
  Sender: FDA-Public Use
  Company Number: US-PFIZER INC-PV202200117573

PATIENT
  Sex: Female

DRUGS (1)
  1. NURTEC ODT [Suspect]
     Active Substance: RIMEGEPANT SULFATE
     Dosage: UNK, DAILY
     Route: 048

REACTIONS (6)
  - Drug ineffective [Unknown]
  - Intentional product misuse [Unknown]
  - Confusional state [Recovered/Resolved]
  - Hot flush [Unknown]
  - Chills [Unknown]
  - Dizziness [Recovered/Resolved]
